FAERS Safety Report 5145667-8 (Version None)
Quarter: 2006Q4

REPORT INFORMATION
  Report Type: 
  Country: None (occurrence: None)
  Receive Date: 20061027
  Receipt Date: 20061018
  Transmission Date: 20070319
  Serious: Yes (Other)
  Sender: FDA-Public Use
  Company Number: HQWYE360111AUG06

PATIENT
  Age: 12 Year
  Sex: Male

DRUGS (3)
  1. REFACTO [Suspect]
     Indication: FACTOR VIII DEFICIENCY
     Dosage: 1570-1590 IU/DOSE (28.9-29.8 IU/KG) APPROXIMATELY 3 TIMES PER WEEK INTRAVENOUS
     Route: 042
     Dates: start: 20060328, end: 20060830
  2. REFACTO [Suspect]
     Indication: PROPHYLAXIS
     Dosage: 1570-1590 IU/DOSE (28.9-29.8 IU/KG) APPROXIMATELY 3 TIMES PER WEEK INTRAVENOUS
     Route: 042
     Dates: start: 20060328, end: 20060830
  3. REFACTO [Suspect]
     Indication: TRAUMATIC HAEMORRHAGE
     Dosage: 1570-1590 IU/DOSE (28.9-29.8 IU/KG) APPROXIMATELY 3 TIMES PER WEEK INTRAVENOUS
     Route: 042
     Dates: start: 20060328, end: 20060830

REACTIONS (1)
  - FACTOR VIII INHIBITION [None]
